FAERS Safety Report 8004490-7 (Version None)
Quarter: 2011Q4

REPORT INFORMATION
  Report Type: 
  Country: None (occurrence: None)
  Receive Date: 20111221
  Receipt Date: 20111221
  Transmission Date: 20120403
  Serious: Yes (Hospitalization)
  Sender: FDA-Public Use
  Company Number: None

PATIENT
  Age: 83 Year
  Sex: Male
  Weight: 99.6 kg

DRUGS (9)
  1. SANCTURA [Suspect]
     Indication: NOCTURIA
     Dosage: PO RECENT
     Route: 048
  2. IBUPROFEN (ADVIL) [Concomitant]
  3. COLACE [Concomitant]
  4. BENADRYL [Concomitant]
  5. MULTIVITAMIN [Concomitant]
  6. FLUOCINOLONE ACETONIDE [Concomitant]
  7. METFORMIN HCL [Suspect]
     Indication: DIABETES MELLITUS
     Dosage: 500MG BID PO CHRONIC
     Route: 048
  8. VITAMIN D [Concomitant]
  9. PREDNISONE TAB [Concomitant]

REACTIONS (3)
  - URTICARIA [None]
  - RASH [None]
  - PRURITUS [None]
